FAERS Safety Report 7883543-8 (Version None)
Quarter: 2011Q4

REPORT INFORMATION
  Report Type: 
  Country: None (occurrence: None)
  Receive Date: 20111102
  Receipt Date: 20111018
  Transmission Date: 20120403
  Serious: Yes (Other)
  Sender: FDA-Public Use
  Company Number: US-ELI_LILLY_AND_COMPANY-US201110005927

PATIENT
  Sex: Male

DRUGS (2)
  1. ZOMETA [Concomitant]
     Indication: BONE DISORDER
  2. FORTEO [Suspect]
     Indication: OSTEOPOROSIS
     Dosage: 20 UG, QD
     Route: 065
     Dates: start: 20110901

REACTIONS (2)
  - JAW DISORDER [None]
  - ABDOMINAL PAIN UPPER [None]
